FAERS Safety Report 14509383 (Version 1)
Quarter: 2018Q1

REPORT INFORMATION
  Report Type: Spontaneous
  Country: US (occurrence: US)
  Receive Date: 20180207
  Receipt Date: 20180207
  Transmission Date: 20180509
  Serious: Yes (Hospitalization)
  Sender: FDA-Public Use
  Company Number: None

PATIENT
  Age: 16 Year
  Sex: Male

DRUGS (4)
  1. PULMOZYME [Suspect]
     Active Substance: DORNASE ALFA
     Indication: CYSTIC FIBROSIS
     Dosage: 2.5ML TWICE DAILY NEBULIZER
     Dates: start: 20171117
  2. RANITIDINE. [Concomitant]
     Active Substance: RANITIDINE
  3. ALBUTEROL NEB [Concomitant]
  4. 3ML LL SYRING MIS [Concomitant]

REACTIONS (2)
  - Fungal infection [None]
  - Liver disorder [None]

NARRATIVE: CASE EVENT DATE: 20180124
